FAERS Safety Report 17410002 (Version 1)
Quarter: 2020Q1

REPORT INFORMATION
  Report Type: Spontaneous
  Country: DK (occurrence: DK)
  Receive Date: 20200212
  Receipt Date: 20200212
  Transmission Date: 20200409
  Serious: Yes (Other)
  Sender: FDA-Public Use
  Company Number: DK-PFIZER INC-2020057582

PATIENT
  Age: 76 Year
  Sex: Male

DRUGS (16)
  1. DOXAZOSIN [Concomitant]
     Active Substance: DOXAZOSIN MESYLATE
     Indication: HYPERTENSION
     Dosage: 8 MG, 1X/DAY
     Route: 048
     Dates: start: 20141022
  2. ACETYLSALICYLIC ACID [Concomitant]
     Active Substance: ASPIRIN
     Indication: ANTICOAGULANT THERAPY
     Dosage: 75 MG, 1X/DAY
     Route: 048
     Dates: start: 20140331
  3. AMLODIPIN [Suspect]
     Active Substance: AMLODIPINE BESYLATE
     Dosage: 1 DF, 1X/DAY
     Route: 048
     Dates: start: 20200110, end: 20200111
  4. FERRO DURETTER [Concomitant]
     Active Substance: FERROUS SULFATE
     Indication: MINERAL SUPPLEMENTATION
     Dosage: 100 MG, 1X/DAY
     Route: 048
     Dates: start: 201901
  5. BETOLVEX [CYANOCOBALAMIN-TANNIN COMPLEX] [Concomitant]
     Indication: VITAMIN B12 DEFICIENCY
     Dosage: 1 MG, 1X/DAY
     Route: 048
     Dates: start: 20140331
  6. AMLODIPIN [Suspect]
     Active Substance: AMLODIPINE BESYLATE
     Dosage: UNK
     Dates: start: 20200112
  7. DEKRISTOL [Concomitant]
     Active Substance: CHOLECALCIFEROL
     Dosage: UNK
  8. NOVORAPID [Concomitant]
     Active Substance: INSULIN ASPART
     Indication: TYPE 2 DIABETES MELLITUS
     Dosage: UNK
  9. CALCIUM AND VITAMIN D [Concomitant]
     Active Substance: CALCIUM\VITAMIN D
     Indication: MINERAL SUPPLEMENTATION
     Dosage: UNK
     Route: 048
  10. SPIRIVA [Concomitant]
     Active Substance: TIOTROPIUM BROMIDE MONOHYDRATE
     Indication: LUNG DISORDER
     Dosage: 18 UG, 1X/DAY
     Route: 055
  11. FUROSEMIDE. [Concomitant]
     Active Substance: FUROSEMIDE
     Indication: HYPERTENSION
     Dosage: 2 TABLETS MORNING, 1 TABLET MIDDAY
     Route: 048
     Dates: start: 20120410
  12. BUVENTOL EASYHALER [Concomitant]
     Active Substance: ALBUTEROL SULFATE
     Indication: BRONCHOSPASM
     Dosage: UNK UNK, AS NEEDED
     Route: 055
     Dates: start: 20180423
  13. SYMBICORT [Concomitant]
     Active Substance: BUDESONIDE\FORMOTEROL FUMARATE DIHYDRATE
     Indication: CHRONIC OBSTRUCTIVE PULMONARY DISEASE
     Dosage: 2 DF, 1X/DAY
     Route: 055
     Dates: start: 20160106
  14. AMLODIPIN [Suspect]
     Active Substance: AMLODIPINE BESYLATE
     Indication: HYPERTENSION
     Dosage: 1 DF, 1X/DAY
     Route: 048
     Dates: start: 20200109, end: 20200109
  15. ATORVASTATIN [Concomitant]
     Active Substance: ATORVASTATIN
     Indication: HYPERCHOLESTEROLAEMIA
     Dosage: 80 MG, 1X/DAY
     Route: 048
     Dates: start: 20131122
  16. METFORMIN [Concomitant]
     Active Substance: METFORMIN HYDROCHLORIDE
     Indication: TYPE 2 DIABETES MELLITUS
     Dosage: 1000 MG, 1X/DAY
     Route: 048
     Dates: start: 20120410

REACTIONS (2)
  - Angioedema [Recovering/Resolving]
  - Oxygen saturation decreased [Recovering/Resolving]

NARRATIVE: CASE EVENT DATE: 20200112
